FAERS Safety Report 4582179-4 (Version None)
Quarter: 2005Q1

REPORT INFORMATION
  Report Type: 
  Country: None (occurrence: None)
  Receive Date: 20050210
  Receipt Date: 20050126
  Transmission Date: 20050727
  Serious: Yes (Death)
  Sender: FDA-Public Use
  Company Number: 2004AL000841

PATIENT
  Age: 62 Year
  Sex: Female

DRUGS (13)
  1. PROPOXYPHENE HYDROCHLORIDE W/ACETAMINOPHEN TAB [Suspect]
     Dosage: PO
     Route: 048
  2. VENLAFAXINE HCL [Suspect]
     Dosage: PO
     Route: 048
  3. HYDROXYZINE [Suspect]
     Dosage: PO
     Route: 048
  4. ALPRAZOLAM [Concomitant]
  5. CYCLOBENZAPRINE HCL [Concomitant]
  6. VALSARTAN [Concomitant]
  7. LEVOTHYROXINE [Concomitant]
  8. TRAMADOL HCL [Concomitant]
  9. FENTANYL [Concomitant]
  10. FLUOXETINE [Concomitant]
  11. RALOXIFENE HCL [Concomitant]
  12. ESTROGENS [Concomitant]
  13. RABEPRAZOLE SODIUM [Concomitant]

REACTIONS (10)
  - CARDIAC ARREST [None]
  - COLD SWEAT [None]
  - COMPLETED SUICIDE [None]
  - DEPRESSED LEVEL OF CONSCIOUSNESS [None]
  - DYSARTHRIA [None]
  - HEART RATE DECREASED [None]
  - HEART RATE INCREASED [None]
  - HYPOTENSION [None]
  - INTENTIONAL MISUSE [None]
  - RESTLESSNESS [None]
